FAERS Safety Report 16489688 (Version 2)
Quarter: 2020Q3

REPORT INFORMATION
  Report Type: Spontaneous
  Country: ES (occurrence: ES)
  Receive Date: 20190628
  Receipt Date: 20190726
  Transmission Date: 20201104
  Serious: Yes (Other)
  Sender: FDA-Public Use
  Company Number: ES-ROCHE-2340454

PATIENT
  Age: 70 Year
  Sex: Female

DRUGS (4)
  1. ALECTINIB. [Suspect]
     Active Substance: ALECTINIB
     Dosage: 450/12 HOURS
     Route: 048
     Dates: start: 20190118
  2. ALECTINIB. [Suspect]
     Active Substance: ALECTINIB
     Route: 048
     Dates: start: 20190212
  3. ALECTINIB. [Suspect]
     Active Substance: ALECTINIB
     Route: 048
     Dates: start: 20190320
  4. ALECTINIB. [Suspect]
     Active Substance: ALECTINIB
     Indication: NON-SMALL CELL LUNG CANCER STAGE IV
     Route: 048
     Dates: start: 20181213

REACTIONS (2)
  - Breast neoplasm [Unknown]
  - Bradycardia [Unknown]

NARRATIVE: CASE EVENT DATE: 20190109
